FAERS Safety Report 6679108-6 (Version None)
Quarter: 2010Q2

REPORT INFORMATION
  Report Type: 
  Country: None (occurrence: None)
  Receive Date: 20100409
  Receipt Date: 20100326
  Transmission Date: 20101027
  Serious: Yes (Hospitalization)
  Sender: FDA-Public Use
  Company Number: JPI-P-010096

PATIENT
  Age: 70 Year
  Sex: Female

DRUGS (4)
  1. XYREM [Suspect]
     Indication: CATAPLEXY
     Dosage: 6 GM (3 GM, 2 IN 1 D), ORAL; 9 GM (4.5 GM, 2 IN 1 D), ORAL
     Route: 048
     Dates: end: 20100301
  2. XYREM [Suspect]
     Indication: CATAPLEXY
     Dosage: 6 GM (3 GM, 2 IN 1 D), ORAL; 9 GM (4.5 GM, 2 IN 1 D), ORAL
     Route: 048
     Dates: start: 20050310
  3. VENLAFAXINE HCL [Concomitant]
  4. LISINOPRIL AND HYDROCHLOROTHIAZIDE [Concomitant]

REACTIONS (2)
  - AMNESIA [None]
  - CONDITION AGGRAVATED [None]
